FAERS Safety Report 24731560 (Version 1)
Quarter: 2024Q4

REPORT INFORMATION
  Report Type: Spontaneous
  Country: GB (occurrence: GB)
  Receive Date: 20241213
  Receipt Date: 20241213
  Transmission Date: 20250115
  Serious: Yes (Other)
  Sender: SAMSUNG BIOEPIS
  Company Number: None

PATIENT
  Sex: Female

DRUGS (1)
  1. PYZCHIVA [Suspect]
     Active Substance: USTEKINUMAB-TTWE
     Indication: Product used for unknown indication

REACTIONS (4)
  - Eye swelling [Recovering/Resolving]
  - Eye discharge [Recovering/Resolving]
  - Eye pruritus [Recovered/Resolved]
  - Dry eye [Recovered/Resolved]
